FAERS Safety Report 17756275 (Version 1)
Quarter: 2020Q2

REPORT INFORMATION
  Report Type: Spontaneous
  Country: FR (occurrence: FR)
  Receive Date: 20200507
  Receipt Date: 20200507
  Transmission Date: 20200714
  Serious: Yes (Hospitalization)
  Sender: FDA-Public Use
  Company Number: FR-MYLANLABS-2020M1045295

PATIENT
  Age: 32 Year
  Sex: Male

DRUGS (3)
  1. ACETYLSALICYLIC ACID [Suspect]
     Active Substance: ASPIRIN
     Indication: HEADACHE
     Dosage: UNK,NON PR?CIS?
     Route: 048
  2. IBUPROFEN. [Suspect]
     Active Substance: IBUPROFEN
     Indication: HEADACHE
     Dosage: UNK,NON PR?CIS?
     Route: 048
  3. PROFEMIGR [Suspect]
     Active Substance: KETOPROFEN
     Indication: HEADACHE
     Dosage: 300 MILLIGRAM, QD
     Route: 048
     Dates: start: 20171009, end: 20171015

REACTIONS (3)
  - Fusobacterium infection [Recovered/Resolved]
  - Brain abscess [Recovered/Resolved]
  - Streptococcal infection [Recovered/Resolved]

NARRATIVE: CASE EVENT DATE: 20171016
